FAERS Safety Report 4608497-9 (Version None)
Quarter: 2005Q1

REPORT INFORMATION
  Report Type: 
  Country: None (occurrence: None)
  Receive Date: 20050315
  Receipt Date: 20050311
  Transmission Date: 20050727
  Serious: Yes (Hospitalization)
  Sender: FDA-Public Use
  Company Number: 2005004461

PATIENT
  Age: 39 Year
  Sex: Female
  Weight: 70 kg

DRUGS (2)
  1. QUILONUM RETARD [Suspect]
     Dosage: 6TAB SINGLE DOSE
     Route: 048
  2. RISPERDAL [Suspect]
     Dosage: 20TAB SINGLE DOSE
     Route: 048

REACTIONS (4)
  - ASTHENOPIA [None]
  - DIZZINESS [None]
  - INTENTIONAL MISUSE [None]
  - SUICIDE ATTEMPT [None]
